FAERS Safety Report 5714243-8 (Version None)
Quarter: 2008Q2

REPORT INFORMATION
  Report Type: 
  Country: None (occurrence: None)
  Receive Date: 20080423
  Receipt Date: 20070815
  Transmission Date: 20081010
  Serious: No
  Sender: FDA-Public Use
  Company Number: US-KINGPHARMUSA00001-K200701037

PATIENT

DRUGS (2)
  1. SKELAXIN [Suspect]
     Indication: ARTHRITIS
     Dosage: 800 MG, QD AT NIGHT
     Route: 048
     Dates: start: 20070812
  2. TYLENOL (CAPLET) [Concomitant]
     Dosage: 2 TABLETS
     Route: 048

REACTIONS (2)
  - NAUSEA [None]
  - VOMITING [None]
